FAERS Safety Report 5441431-0 (Version None)
Quarter: 2007Q3

REPORT INFORMATION
  Report Type: 
  Country: None (occurrence: None)
  Receive Date: 20070904
  Receipt Date: 20070828
  Transmission Date: 20080115
  Serious: Yes (Hospitalization)
  Sender: FDA-Public Use
  Company Number: HQWYE237426JUL07

PATIENT
  Sex: Male
  Weight: 92.4 kg

DRUGS (6)
  1. SIROLIMUS [Suspect]
     Indication: PROPHYLAXIS AGAINST TRANSPLANT REJECTION
     Dates: start: 20050209
  2. PANTOPRAZOLE SODIUM [Concomitant]
     Indication: PROPHYLAXIS
     Route: 048
     Dates: start: 20011011
  3. ALLOPURINOL [Concomitant]
     Indication: HYPERURICAEMIA
     Route: 048
     Dates: start: 20070605
  4. METAMIZOLE [Concomitant]
     Indication: ARTHRALGIA
     Dosage: UNSPECIFIED
     Route: 048
     Dates: start: 20070614, end: 20070721
  5. MAGNESIUM SULFATE [Concomitant]
     Dosage: UNSPECIFIED
     Route: 048
     Dates: start: 20061218
  6. URSODIOL [Concomitant]
     Indication: PROPHYLAXIS
     Route: 048
     Dates: start: 20061116

REACTIONS (1)
  - ARTHROPATHY [None]
